FAERS Safety Report 23870037 (Version 3)
Quarter: 2024Q2

REPORT INFORMATION
  Report Type: Report from Study
  Country: US (occurrence: US)
  Receive Date: 20240517
  Receipt Date: 20240627
  Transmission Date: 20240715
  Serious: No
  Sender: FDA-Public Use
  Company Number: US-SA-SAC20240514000720

PATIENT
  Age: 22 Year
  Sex: Female

DRUGS (4)
  1. TEPLIZUMAB-MZWV [Suspect]
     Active Substance: TEPLIZUMAB-MZWV
     Indication: Hypoglycaemia
     Dosage: 91 UG, 1X
     Route: 041
     Dates: start: 20240509, end: 20240509
  2. TEPLIZUMAB-MZWV [Suspect]
     Active Substance: TEPLIZUMAB-MZWV
     Dosage: 175 UG, 1X
     Route: 042
     Dates: start: 20240510, end: 20240510
  3. TEPLIZUMAB-MZWV [Suspect]
     Active Substance: TEPLIZUMAB-MZWV
     Dosage: 350 UG, 1X
     Route: 042
     Dates: start: 20240511, end: 20240511
  4. TEPLIZUMAB-MZWV [Suspect]
     Active Substance: TEPLIZUMAB-MZWV
     Dosage: 1442 UG
     Route: 042
     Dates: start: 20240513

REACTIONS (10)
  - Hepatic enzyme increased [Unknown]
  - Peripheral swelling [Unknown]
  - Platelet count decreased [Unknown]
  - Pyrexia [Unknown]
  - Headache [Unknown]
  - Nausea [Unknown]
  - Vomiting [Unknown]
  - Diarrhoea [Unknown]
  - Rash [Unknown]
  - Product use in unapproved indication [Unknown]

NARRATIVE: CASE EVENT DATE: 20240509
